FAERS Safety Report 16735621 (Version 1)
Quarter: 2019Q3

REPORT INFORMATION
  Report Type: Spontaneous
  Country: CN (occurrence: CN)
  Receive Date: 20190823
  Receipt Date: 20190823
  Transmission Date: 20191005
  Serious: Yes (Other)
  Sender: FDA-Public Use
  Company Number: CN-009507513-1908CHN006870

PATIENT
  Age: 64 Year
  Sex: Male
  Weight: 67 kg

DRUGS (4)
  1. TIENAM [Suspect]
     Active Substance: CILASTATIN SODIUM\IMIPENEM
     Indication: UPPER GASTROINTESTINAL HAEMORRHAGE
     Dosage: 500 MILLIGRAM, Q8H
     Route: 042
     Dates: start: 20190724, end: 20190731
  2. VITAMINS (UNSPECIFIED) [Suspect]
     Active Substance: VITAMINS
     Indication: NUTRITIONAL SUPPLEMENTATION
  3. VITAMINS (UNSPECIFIED) [Suspect]
     Active Substance: VITAMINS
     Indication: UPPER GASTROINTESTINAL HAEMORRHAGE
     Dosage: 22.3 MILLIGRAM, QD
     Route: 042
     Dates: start: 20190724, end: 20190731
  4. TIENAM [Suspect]
     Active Substance: CILASTATIN SODIUM\IMIPENEM
     Indication: INFECTION

REACTIONS (1)
  - Drug eruption [Recovering/Resolving]

NARRATIVE: CASE EVENT DATE: 20190731
